FAERS Safety Report 9607895 (Version 2)
Quarter: 2013Q4

REPORT INFORMATION
  Report Type: Spontaneous
  Country: US (occurrence: US)
  Receive Date: 20131009
  Receipt Date: 20131105
  Transmission Date: 20140711
  Serious: Yes (Other)
  Sender: FDA-Public Use
  Company Number: US-ASTRAZENECA-2013SE73310

PATIENT
  Age: 78 Year
  Sex: Female
  Weight: 79.4 kg

DRUGS (11)
  1. RHINOCORT AQUA [Suspect]
     Indication: RHINITIS
     Dosage: 2 PUFFS EACH NOSTRIL DAILY
     Route: 045
     Dates: start: 2005, end: 201301
  2. RHINOCORT AQUA [Suspect]
     Indication: CHRONIC SINUSITIS
     Dosage: 2 PUFFS EACH NOSTRIL DAILY
     Route: 045
     Dates: start: 2005, end: 201301
  3. RHINOCORT AQUA [Suspect]
     Indication: SINUSITIS
     Dosage: 2 PUFFS EACH NOSTRIL DAILY
     Route: 045
     Dates: start: 2005, end: 201301
  4. RHINOCORT AQUA [Suspect]
     Indication: RHINITIS
     Dosage: PRN
     Route: 045
  5. RHINOCORT AQUA [Suspect]
     Indication: CHRONIC SINUSITIS
     Dosage: PRN
     Route: 045
  6. RHINOCORT AQUA [Suspect]
     Indication: SINUSITIS
     Dosage: PRN
     Route: 045
  7. BLOOD PRESSURE MEDICATION [Concomitant]
     Indication: BLOOD PRESSURE ABNORMAL
     Dosage: NOT OFFERED
     Dates: start: 2005
  8. BLOOD PRESSURE MEDICATION [Concomitant]
     Indication: BLOOD PRESSURE ABNORMAL
     Dosage: LOW DOSE
  9. CHOLESTEROL MEDICATION [Concomitant]
     Indication: BLOOD CHOLESTEROL ABNORMAL
     Dosage: NOT OFFERED
     Dates: start: 2005
  10. CHOLESTEROL MEDICATION [Concomitant]
     Indication: BLOOD CHOLESTEROL ABNORMAL
     Dosage: LOW DOSE
  11. CLOPIDOGREL [Concomitant]
     Indication: CAROTID ARTERY OCCLUSION
     Dates: start: 2008

REACTIONS (10)
  - Arterial occlusive disease [Unknown]
  - Tympanic membrane perforation [Not Recovered/Not Resolved]
  - Labyrinthitis [Recovered/Resolved]
  - Blood pressure increased [Unknown]
  - Blood cholesterol increased [Unknown]
  - Sinusitis [Not Recovered/Not Resolved]
  - Ear infection [Not Recovered/Not Resolved]
  - Otorrhoea [Not Recovered/Not Resolved]
  - Impaired healing [Not Recovered/Not Resolved]
  - Intentional drug misuse [Unknown]
